FAERS Safety Report 11099666 (Version 1)
Quarter: 2015Q2

REPORT INFORMATION
  Report Type: Spontaneous
  Country: PL (occurrence: PL)
  Receive Date: 20150508
  Receipt Date: 20150508
  Transmission Date: 20150821
  Serious: Yes (Other)
  Sender: FDA-Public Use
  Company Number: PL-MYLANLABS-2015M1015244

PATIENT

DRUGS (4)
  1. ARIPIPRAZOLE. [Suspect]
     Active Substance: ARIPIPRAZOLE
     Indication: SCHIZOPHRENIA
     Dosage: 30 MG/DAY
     Route: 065
  2. RISPERIDONE. [Suspect]
     Active Substance: RISPERIDONE
     Indication: SCHIZOPHRENIA
     Route: 065
  3. PERAZINE [Suspect]
     Active Substance: PERAZINE
     Indication: SCHIZOPHRENIA
     Dosage: 100 MG/DAY
     Route: 065
  4. CARBAMAZEPINE. [Concomitant]
     Active Substance: CARBAMAZEPINE
     Indication: SCHIZOPHRENIA
     Dosage: 800 MG/DAY
     Route: 065

REACTIONS (6)
  - Stomatitis [Recovered/Resolved]
  - Dry mouth [Recovered/Resolved]
  - Dental plaque [Recovered/Resolved]
  - Breath odour [Unknown]
  - Aptyalism [Unknown]
  - Dental caries [Recovered/Resolved]
